FAERS Safety Report 9513723 (Version 3)
Quarter: 2014Q1

REPORT INFORMATION
  Report Type: Spontaneous
  Country: US (occurrence: US)
  Receive Date: 20130910
  Receipt Date: 20140102
  Transmission Date: 20141002
  Serious: Yes (Other)
  Sender: FDA-Public Use
  Company Number: US-BAYER-2013-108775

PATIENT
  Age: 20 Year
  Sex: Female
  Weight: 53.52 kg

DRUGS (3)
  1. MIRENA [Suspect]
     Indication: CONTRACEPTION
     Dosage: 20 MCG/24HR, CONT
     Route: 015
     Dates: start: 20080911, end: 20090303
  2. ZOLOFT [Concomitant]
     Indication: POSTPARTUM DEPRESSION
     Dosage: UNK
     Route: 048
     Dates: start: 20090303
  3. PRENATAL VITAMINS [Concomitant]

REACTIONS (10)
  - Uterine perforation [None]
  - Abdominal pain [None]
  - Pelvic pain [None]
  - Injury [None]
  - Pain [None]
  - Emotional distress [None]
  - Depression [None]
  - Anxiety [None]
  - Device issue [None]
  - Device issue [None]
